FAERS Safety Report 8409588-7 (Version None)
Quarter: 2012Q2

REPORT INFORMATION
  Report Type: 
  Country: None (occurrence: None)
  Receive Date: 20120531
  Receipt Date: 20120531
  Transmission Date: 20120825
  Serious: Yes (Other)
  Sender: FDA-Public Use
  Company Number: None

PATIENT
  Age: 55 Year
  Sex: Female
  Weight: 79.3795 kg

DRUGS (2)
  1. WARFARIN SODIUM [Suspect]
     Indication: DEEP VEIN THROMBOSIS
     Dosage: 5MG, THEN 2.5MG DAILY ORAL
     Route: 048
     Dates: start: 20120515
  2. WARFARIN SODIUM [Suspect]
     Indication: DEEP VEIN THROMBOSIS
     Dosage: 5MG, THEN 2.5MG DAILY ORAL
     Route: 048
     Dates: start: 20120504

REACTIONS (2)
  - SWELLING [None]
  - MYALGIA [None]
